FAERS Safety Report 8599434 (Version 3)
Quarter: 2013Q1

REPORT INFORMATION
  Report Type: Spontaneous
  Country: JP (occurrence: JP)
  Receive Date: 20120605
  Receipt Date: 20130220
  Transmission Date: 20140127
  Serious: Yes (Death, Hospitalization, Other)
  Sender: FDA-Public Use
  Company Number: PHHY2012JP046230

PATIENT
  Age: 67 Year
  Sex: Female
  Weight: 54 kg

DRUGS (24)
  1. GLIVEC [Suspect]
     Indication: PULMONARY ARTERIAL HYPERTENSION
     Dosage: 100 MG, DAILY
     Route: 048
     Dates: start: 20081130
  2. GLIVEC [Suspect]
     Dosage: 200 MG, DAILY
     Route: 048
     Dates: start: 20091107
  3. GLIVEC [Suspect]
     Dosage: 100 MG, DAILY
     Route: 048
     Dates: start: 20091217, end: 20091222
  4. GLIVEC [Suspect]
     Dosage: 100 MG, DAILY
     Route: 048
     Dates: start: 20100206, end: 20100320
  5. BAYASPIRIN [Suspect]
     Indication: SCLERODERMA
     Dosage: 100 MG, DAILY
     Route: 048
     Dates: start: 20081130, end: 20091228
  6. ANPLAG [Suspect]
     Indication: SCLERODERMA
     Dosage: 300 MG, DAILY
     Route: 048
     Dates: start: 20081130, end: 20091228
  7. CARELOAD [Suspect]
     Indication: PULMONARY ARTERIAL HYPERTENSION
     Dosage: 120 MG, DAILY
     Route: 048
     Dates: start: 20100201, end: 20100225
  8. OPALMON [Suspect]
     Indication: SCLERODERMA
     Dosage: 15 MG, DAILY
     Route: 048
     Dates: start: 20081130, end: 20091228
  9. ASPIRIN [Concomitant]
     Dosage: UNK UKN, UNK
     Route: 048
  10. SARPOGRELATE HYDROCHLORIDE [Concomitant]
     Route: 048
  11. BERAPROST SODIUM [Concomitant]
     Dosage: 120 UG
     Route: 065
  12. BOSENTAN MONOHYDRATE [Concomitant]
     Dosage: 250 MG
     Route: 048
  13. SILDENAFIL CITRATE [Concomitant]
     Dosage: 60 MG
     Route: 048
  14. TRACLEER [Concomitant]
     Indication: PULMONARY ARTERIAL HYPERTENSION
     Dosage: 250 MG, UNK
     Route: 048
     Dates: start: 20081130, end: 20100320
  15. REVATIO [Concomitant]
     Indication: PULMONARY ARTERIAL HYPERTENSION
     Dosage: 60 MG, UNK
     Route: 048
     Dates: start: 20081130, end: 20100320
  16. LASIX [Concomitant]
     Indication: RIGHT VENTRICULAR FAILURE
     Dosage: 60 MG, UNK
     Route: 048
     Dates: start: 200811, end: 20100320
  17. ALDACTONE A [Concomitant]
     Indication: RIGHT VENTRICULAR FAILURE
     Dosage: 25 MG, UNK
     Route: 048
     Dates: start: 200811, end: 20100320
  18. PARIET [Concomitant]
     Indication: PROPHYLAXIS AGAINST GASTROINTESTINAL ULCER
     Dosage: 10 MG, UNK
     Route: 048
     Dates: start: 20081130, end: 20100320
  19. ACARDI [Concomitant]
     Indication: RIGHT VENTRICULAR FAILURE
     Dosage: 1.25 MG, UNK
     Route: 048
     Dates: start: 20100208, end: 20100320
  20. THYRADIN [Concomitant]
     Indication: HYPOTHYROIDISM
     Dosage: 50 MG, UNK
     Route: 048
     Dates: start: 20081130, end: 20100320
  21. JUVELA N [Concomitant]
     Indication: SCLERODERMA
     Dosage: 600 MG, UNK
     Route: 048
     Dates: start: 20081130, end: 20100320
  22. GASMOTIN [Concomitant]
     Indication: PROPHYLAXIS AGAINST GASTROINTESTINAL ULCER
     Dosage: 15 MG, UNK
     Route: 048
     Dates: start: 20081130, end: 20100320
  23. MUCOSTA [Concomitant]
     Indication: PROPHYLAXIS AGAINST GASTROINTESTINAL ULCER
     Dosage: 300 MG, UNK
     Route: 048
     Dates: start: 20081130, end: 20100320
  24. CINAL [Concomitant]
     Indication: SCLERODERMA
     Dosage: 6 DF, UNK
     Route: 048
     Dates: start: 20081130, end: 20100320

REACTIONS (10)
  - Subdural haematoma [Fatal]
  - Head injury [Unknown]
  - Loss of consciousness [Unknown]
  - Right ventricular failure [Unknown]
  - Depressed level of consciousness [Unknown]
  - Paresis [Unknown]
  - Subdural haemorrhage [Unknown]
  - Renal impairment [Unknown]
  - Fall [Unknown]
  - Pulmonary hypertension [Unknown]
